FAERS Safety Report 6663431-5 (Version None)
Quarter: 2010Q2

REPORT INFORMATION
  Report Type: 
  Country: None (occurrence: None)
  Receive Date: 20100401
  Receipt Date: 20100323
  Transmission Date: 20101027
  Serious: Yes (Hospitalization)
  Sender: FDA-Public Use
  Company Number: US-ASTRAZENECA-2010SE12746

PATIENT
  Age: 19 Year
  Sex: Male
  Weight: 77.1 kg

DRUGS (3)
  1. SEROQUEL [Suspect]
     Indication: HALLUCINATION, AUDITORY
     Route: 048
  2. SEROQUEL [Suspect]
     Route: 048
     Dates: start: 20100313
  3. ATIVAN [Concomitant]

REACTIONS (6)
  - CHOKING [None]
  - COMMUNICATION DISORDER [None]
  - DRUG INEFFECTIVE [None]
  - HALLUCINATION, AUDITORY [None]
  - HYPOKINESIA [None]
  - LIP DISORDER [None]
